FAERS Safety Report 9648499 (Version 1)
Quarter: 2013Q4

REPORT INFORMATION
  Report Type: Spontaneous
  Country: US (occurrence: US)
  Receive Date: 20131028
  Receipt Date: 20131028
  Transmission Date: 20140711
  Serious: Yes (Other)
  Sender: FDA-Public Use
  Company Number: US-JNJFOC-20131011831

PATIENT
  Sex: Female

DRUGS (4)
  1. RISPERDAL [Suspect]
     Indication: MAJOR DEPRESSION
     Route: 048
  2. RISPERDAL [Suspect]
     Indication: MAJOR DEPRESSION
     Route: 048
  3. RISPERDAL [Suspect]
     Indication: POST-TRAUMATIC STRESS DISORDER
     Route: 048
  4. RISPERDAL [Suspect]
     Indication: POST-TRAUMATIC STRESS DISORDER
     Route: 048

REACTIONS (5)
  - Depression [Recovering/Resolving]
  - Suicidal ideation [Recovering/Resolving]
  - Tardive dyskinesia [Unknown]
  - Off label use [Unknown]
  - Condition aggravated [Recovered/Resolved]
